FAERS Safety Report 21928166 (Version 1)
Quarter: 2023Q1

REPORT INFORMATION
  Report Type: Spontaneous
  Country: US (occurrence: US)
  Receive Date: 20230130
  Receipt Date: 20230130
  Transmission Date: 20230418
  Serious: No
  Sender: FDA-Public Use
  Company Number: US-BAUSCH-BL-2023-001069

PATIENT
  Sex: Female

DRUGS (1)
  1. EFUDEX [Suspect]
     Active Substance: FLUOROURACIL
     Indication: Product used for unknown indication
     Route: 061
     Dates: start: 202301

REACTIONS (5)
  - Nausea [Unknown]
  - Dysgeusia [Unknown]
  - Headache [Unknown]
  - Abdominal discomfort [Unknown]
  - Skin disorder [Unknown]

NARRATIVE: CASE EVENT DATE: 20230101
